FAERS Safety Report 6486575-X (Version None)
Quarter: 2009Q4

REPORT INFORMATION
  Report Type: 
  Country: None (occurrence: None)
  Receive Date: 20091210
  Receipt Date: 20091201
  Transmission Date: 20100525
  Serious: Yes (Other)
  Sender: FDA-Public Use
  Company Number: PHHY2009DE51630

PATIENT
  Age: 68 Year
  Sex: Female

DRUGS (2)
  1. EXELON [Suspect]
     Dosage: 4.6 MG/24 HOURS AND 9.5 MG/24 HOURS PATCH
     Route: 062
     Dates: start: 20091101, end: 20091117
  2. EXELON [Suspect]
     Dosage: 4.6 MG PER 24 HOURS
     Route: 062
     Dates: start: 20091117

REACTIONS (6)
  - APPLICATION SITE PRURITUS [None]
  - COORDINATION ABNORMAL [None]
  - FEMORAL NECK FRACTURE [None]
  - NAUSEA [None]
  - RESTLESSNESS [None]
  - TREMOR [None]
